FAERS Safety Report 8246167-9 (Version None)
Quarter: 2012Q1

REPORT INFORMATION
  Report Type: 
  Country: None (occurrence: None)
  Receive Date: 20120328
  Receipt Date: 20120328
  Transmission Date: 20120608
  Serious: Yes (Other)
  Sender: FDA-Public Use
  Company Number: None

PATIENT
  Sex: Female
  Weight: 108.8633 kg

DRUGS (1)
  1. ATORVASTATIN [Suspect]
     Indication: BLOOD CHOLESTEROL
     Dosage: 1 BY MOUTH EVERY DAY ONE PER DAY
     Route: 048
     Dates: start: 20120127

REACTIONS (9)
  - PAIN IN EXTREMITY [None]
  - OEDEMA PERIPHERAL [None]
  - UNEVALUABLE EVENT [None]
  - BURNING SENSATION [None]
  - MIDDLE INSOMNIA [None]
  - ARTHRITIS [None]
  - NODULE [None]
  - INADEQUATE ANALGESIA [None]
  - SOMNOLENCE [None]
